FAERS Safety Report 7471051-8 (Version None)
Quarter: 2011Q2

REPORT INFORMATION
  Report Type: 
  Country: None (occurrence: None)
  Receive Date: 20110510
  Receipt Date: 20110507
  Transmission Date: 20111010
  Serious: Yes (Other)
  Sender: FDA-Public Use
  Company Number: US-PFIZER INC-2011098463

PATIENT
  Sex: Male
  Weight: 126.98 kg

DRUGS (3)
  1. SEROQUEL [Suspect]
     Dosage: UNK
  2. GEODON [Suspect]
     Indication: BIPOLAR DISORDER
     Dosage: UNK
     Dates: start: 20040101
  3. SAPHRIS [Suspect]
     Dosage: UNK

REACTIONS (3)
  - WEIGHT INCREASED [None]
  - VISION BLURRED [None]
  - DRUG INEFFECTIVE [None]
